FAERS Safety Report 6823050-4 (Version None)
Quarter: 2010Q3

REPORT INFORMATION
  Report Type: 
  Country: None (occurrence: None)
  Receive Date: 20100708
  Receipt Date: 20100705
  Transmission Date: 20110219
  Serious: Yes (Hospitalization)
  Sender: FDA-Public Use
  Company Number: B0663543A

PATIENT
  Sex: Male
  Weight: 68 kg

DRUGS (13)
  1. ARIXTRA [Suspect]
     Indication: THROMBOSIS PROPHYLAXIS
     Dosage: 2.5MG PER DAY
     Route: 058
     Dates: start: 20100331, end: 20100402
  2. LOVENOX [Suspect]
     Indication: THROMBOSIS PROPHYLAXIS
     Dosage: .2ML PER DAY
     Route: 058
     Dates: start: 20100324, end: 20100331
  3. SEROPLEX [Concomitant]
     Dosage: 15MG PER DAY
     Route: 048
  4. SITAGLIPTIN PHOSPHATE [Concomitant]
     Dosage: 1UNIT PER DAY
     Route: 065
  5. LANZOR [Concomitant]
     Dosage: 15MG PER DAY
     Route: 065
  6. AMLOR [Concomitant]
     Dosage: 5MG PER DAY
     Route: 065
  7. NOVONORM [Concomitant]
     Dosage: 2MG SIX TIMES PER DAY
     Route: 065
  8. FUROSEMIDE [Concomitant]
     Dosage: 20MG PER DAY
     Route: 065
  9. TAHOR [Concomitant]
     Dosage: 10MG PER DAY
     Route: 065
  10. LANTUS [Concomitant]
     Route: 058
  11. SERETIDE [Concomitant]
     Route: 065
  12. VENTOLIN [Concomitant]
     Route: 065
  13. LEXOMIL [Concomitant]
     Dosage: 3MG PER DAY
     Route: 065

REACTIONS (4)
  - BACK PAIN [None]
  - MUSCULAR WEAKNESS [None]
  - OFF LABEL USE [None]
  - SPINAL HAEMATOMA [None]
